FAERS Safety Report 18257495 (Version 2)
Quarter: 2020Q4

REPORT INFORMATION
  Report Type: Report from Study
  Country: TW (occurrence: TW)
  Receive Date: 20200911
  Receipt Date: 20201029
  Transmission Date: 20210113
  Serious: Yes (Hospitalization)
  Sender: FDA-Public Use
  Company Number: TW-ASTRAZENECA-2020SF08191

PATIENT
  Age: 78 Year
  Sex: Male

DRUGS (30)
  1. BENDAMUSTINE [Suspect]
     Active Substance: BENDAMUSTINE
     Indication: MANTLE CELL LYMPHOMA
     Dosage: 153.0MG/M2 ONCE/SINGLE ADMINISTRATION
     Route: 042
     Dates: start: 20191126, end: 20191126
  2. BENDAMUSTINE [Suspect]
     Active Substance: BENDAMUSTINE
     Indication: MANTLE CELL LYMPHOMA
     Dosage: 153.0MG/M2 ONCE/SINGLE ADMINISTRATION
     Route: 042
     Dates: start: 20191225, end: 20191225
  3. BENDAMUSTINE [Suspect]
     Active Substance: BENDAMUSTINE
     Indication: MANTLE CELL LYMPHOMA
     Dosage: 153.9MG/M2 ONCE/SINGLE ADMINISTRATION
     Route: 042
     Dates: start: 20200120, end: 20200120
  4. RITUXIMAB. [Suspect]
     Active Substance: RITUXIMAB
     Indication: MANTLE CELL LYMPHOMA
     Dosage: 630.0MG/M2 ONCE/SINGLE ADMINISTRATION
     Route: 042
     Dates: start: 20190903, end: 20190903
  5. RITUXIMAB. [Suspect]
     Active Substance: RITUXIMAB
     Indication: MANTLE CELL LYMPHOMA
     Dosage: 626.3MG/M2 ONCE/SINGLE ADMINISTRATION
     Route: 042
     Dates: start: 20191001, end: 20191001
  6. DIFLUCORTOLONE OINTMENT [Concomitant]
     Indication: DERMATOPHYTOSIS OF NAIL
     Route: 061
     Dates: start: 20190729
  7. MIRABEGRON PROLONGED-RELEASE [Concomitant]
     Indication: PROSTATE CANCER
     Route: 048
     Dates: start: 20191014
  8. BENDAMUSTINE [Suspect]
     Active Substance: BENDAMUSTINE
     Indication: MANTLE CELL LYMPHOMA
     Dosage: 151.2MG/M2 ONCE/SINGLE ADMINISTRATION
     Route: 042
     Dates: start: 20190903, end: 20190903
  9. BENDAMUSTINE [Suspect]
     Active Substance: BENDAMUSTINE
     Indication: MANTLE CELL LYMPHOMA
     Dosage: 151.2MG/M2 ONCE/SINGLE ADMINISTRATION
     Route: 042
     Dates: start: 20190904, end: 20190904
  10. BENDAMUSTINE [Suspect]
     Active Substance: BENDAMUSTINE
     Indication: MANTLE CELL LYMPHOMA
     Dosage: 153.9 MG ONCE/SINGLE ADMINISTRATION - END OF STUDY TREATMENT ONCE/SINGLE ADMINISTRATION
     Route: 042
     Dates: start: 20200121, end: 20200121
  11. RITUXIMAB. [Suspect]
     Active Substance: RITUXIMAB
     Indication: MANTLE CELL LYMPHOMA
     Dosage: 641.3MG/M2 ONCE/SINGLE ADMINISTRATION
     Route: 042
     Dates: start: 20200120, end: 20200120
  12. RITUXIMAB. [Suspect]
     Active Substance: RITUXIMAB
     Indication: MANTLE CELL LYMPHOMA
     Dosage: 626.3MG/M2 ONCE/SINGLE ADMINISTRATION
     Route: 042
     Dates: start: 20200512, end: 20200512
  13. ACALABRUTINIB. [Suspect]
     Active Substance: ACALABRUTINIB
     Indication: MANTLE CELL LYMPHOMA
     Route: 048
     Dates: start: 20190903, end: 20200831
  14. RITUXIMAB. [Suspect]
     Active Substance: RITUXIMAB
     Indication: MANTLE CELL LYMPHOMA
     Dosage: 626.3MG/M2 ONCE/SINGLE ADMINISTRATION
     Route: 042
     Dates: start: 20191029, end: 20191029
  15. RITUXIMAB. [Suspect]
     Active Substance: RITUXIMAB
     Indication: MANTLE CELL LYMPHOMA
     Dosage: 637.5MG/M2 ONCE/SINGLE ADMINISTRATION
     Route: 042
     Dates: start: 20200317, end: 20200317
  16. RITUXIMAB. [Suspect]
     Active Substance: RITUXIMAB
     Indication: MANTLE CELL LYMPHOMA
     Dosage: 622.5MG/M2 ONCE/SINGLE ADMINISTRATION
     Route: 042
     Dates: start: 20200707, end: 20200707
  17. DOXEPIN CREAM [Concomitant]
     Indication: DERMATITIS CONTACT
     Dosage: 15.0G AS REQUIRED
     Route: 061
     Dates: start: 20191118
  18. RITUXIMAB. [Suspect]
     Active Substance: RITUXIMAB
     Indication: MANTLE CELL LYMPHOMA
     Dosage: 637.5MG/M2 ONCE/SINGLE ADMINISTRATION
     Route: 042
     Dates: start: 20191224, end: 20191224
  19. KETOCONAZOLE CREAM [Concomitant]
     Active Substance: KETOCONAZOLE
     Indication: DERMATOPHYTOSIS OF NAIL
     Route: 061
     Dates: start: 20200729
  20. BENDAMUSTINE [Suspect]
     Active Substance: BENDAMUSTINE
     Indication: MANTLE CELL LYMPHOMA
     Dosage: 153.0MG/M2 ONCE/SINGLE ADMINISTRATION
     Route: 042
     Dates: start: 20191127, end: 20191127
  21. BENDAMUSTINE [Suspect]
     Active Substance: BENDAMUSTINE
     Indication: MANTLE CELL LYMPHOMA
     Dosage: 153.0MG/M2 ONCE/SINGLE ADMINISTRATION
     Route: 042
     Dates: start: 20191224, end: 20191224
  22. RITUXIMAB. [Suspect]
     Active Substance: RITUXIMAB
     Indication: MANTLE CELL LYMPHOMA
     Dosage: 637.5MG/M2 ONCE/SINGLE ADMINISTRATION
     Route: 042
     Dates: start: 20191126, end: 20191126
  23. METOCLOPRAMIDE. [Concomitant]
     Active Substance: METOCLOPRAMIDE
     Indication: GASTRITIS
     Route: 048
     Dates: start: 20190910
  24. HEPARINOID [Concomitant]
     Active Substance: CHONDROITIN SULFATE (BOVINE)
     Indication: PROPHYLAXIS
     Dosage: 20.0G AS REQUIRED
     Route: 061
     Dates: start: 20190923
  25. BENDAMUSTINE [Suspect]
     Active Substance: BENDAMUSTINE
     Indication: MANTLE CELL LYMPHOMA
     Dosage: 150.3MG/M2 ONCE/SINGLE ADMINISTRATION
     Route: 042
     Dates: start: 20191001, end: 20191001
  26. BENDAMUSTINE [Suspect]
     Active Substance: BENDAMUSTINE
     Indication: MANTLE CELL LYMPHOMA
     Dosage: 150.3MG/M2 ONCE/SINGLE ADMINISTRATION
     Route: 042
     Dates: start: 20191002, end: 20191002
  27. BENDAMUSTINE [Suspect]
     Active Substance: BENDAMUSTINE
     Indication: MANTLE CELL LYMPHOMA
     Dosage: 151.2MG/M2 ONCE/SINGLE ADMINISTRATION
     Route: 042
     Dates: start: 20191030, end: 20191030
  28. BENDAMUSTINE [Suspect]
     Active Substance: BENDAMUSTINE
     Indication: MANTLE CELL LYMPHOMA
     Dosage: 151.2MG/M2 ONCE/SINGLE ADMINISTRATION
     Route: 042
     Dates: start: 20191029, end: 20191029
  29. BETADERM CREAM(THE ACTIVE INGREDIENTS:DIPH ENYLPYRALINE HCL, NEOMYC... [Concomitant]
     Indication: DERMATITIS
     Dosage: 0.1% AS REQUIRED
     Route: 061
     Dates: start: 20200601
  30. DESMOPRESSIN [Concomitant]
     Active Substance: DESMOPRESSIN
     Indication: MICTURITION URGENCY
     Route: 048
     Dates: start: 20200817

REACTIONS (1)
  - Meningitis [Recovered/Resolved]

NARRATIVE: CASE EVENT DATE: 20200825
